FAERS Safety Report 18254254 (Version 3)
Quarter: 2020Q3

REPORT INFORMATION
  Report Type: Report from Study
  Country: None (occurrence: US)
  Receive Date: 20200911
  Receipt Date: 20200924
  Transmission Date: 20201103
  Serious: Yes (Death, Other)
  Sender: FDA-Public Use
  Company Number: US-ABBVIE-20K-163-3559638-00

PATIENT
  Age: 89 Year
  Sex: Male

DRUGS (11)
  1. NEPHROCAPS [Concomitant]
     Active Substance: ASCORBIC ACID\BIOTIN\CYANOCOBALAMIN\FOLIC ACID\NIACIN\PANTOTHENIC ACID\PYRIDOXINE\RIBOFLAVIN\THIAMINE
     Indication: PRODUCT USED FOR UNKNOWN INDICATION
  2. IMBRUVICA [Suspect]
     Active Substance: IBRUTINIB
     Indication: CHRONIC LYMPHOCYTIC LEUKAEMIA
     Route: 048
     Dates: start: 20200903, end: 202009
  3. VITAMIN D [COLECALCIFEROL] [Concomitant]
     Active Substance: CHOLECALCIFEROL
     Indication: PRODUCT USED FOR UNKNOWN INDICATION
  4. ASPIRIN (E.C.) [Concomitant]
     Active Substance: ASPIRIN
     Indication: CARDIOVASCULAR EVENT PROPHYLAXIS
  5. TRAZODONE [Concomitant]
     Active Substance: TRAZODONE HYDROCHLORIDE
     Indication: SLEEP DISORDER
  6. VITAMIN B COMPLEX [Concomitant]
     Active Substance: CYANOCOBALAMIN\DEXPANTHENOL\NIACINAMIDE\PYRIDOXINE HYDROCHLORIDE\RIBOFLAVIN 5^-PHOSPHATE SODIUM\THIAMINE HYDROCHLORIDE\VITAMIN B COMPLEX
     Indication: PRODUCT USED FOR UNKNOWN INDICATION
  7. PROAIR RESPICLICK [Concomitant]
     Active Substance: ALBUTEROL SULFATE
     Indication: PRODUCT USED FOR UNKNOWN INDICATION
  8. SIMVASTATIN. [Concomitant]
     Active Substance: SIMVASTATIN
     Indication: HYPERCHOLESTEROLAEMIA
  9. AMLODIPINE 2.5MG (NON?ABBVIE) [Concomitant]
     Indication: PRODUCT USED FOR UNKNOWN INDICATION
  10. RENVELA [Concomitant]
     Active Substance: SEVELAMER CARBONATE
     Indication: NEPHROPATHY
  11. METOPROLOL. [Concomitant]
     Active Substance: METOPROLOL
     Indication: HYPERTENSION

REACTIONS (3)
  - Cardiac arrest [Fatal]
  - Arteriovenous fistula site haemorrhage [Fatal]
  - Graft haemorrhage [Not Recovered/Not Resolved]

NARRATIVE: CASE EVENT DATE: 20200907
